FAERS Safety Report 7051291-2 (Version None)
Quarter: 2010Q4

REPORT INFORMATION
  Report Type: 
  Country: None (occurrence: None)
  Receive Date: 20101013
  Receipt Date: 20100929
  Transmission Date: 20110411
  Serious: Yes (Hospitalization, Other)
  Sender: FDA-Public Use
  Company Number: 018078

PATIENT
  Sex: Male
  Weight: 20.3 kg

DRUGS (4)
  1. LACOSAMIDE [Suspect]
     Indication: PARTIAL SEIZURES
     Dosage: (5 ML BID, 01/SEP/2010 TAKEN ONLY AT AM ORAL) ; (3 ML BID, 01/SEP/2010 STARTED AT PM)
     Route: 048
     Dates: start: 20100623, end: 20100901
  2. LACOSAMIDE [Suspect]
     Indication: PARTIAL SEIZURES
     Dosage: (5 ML BID, 01/SEP/2010 TAKEN ONLY AT AM ORAL) ; (3 ML BID, 01/SEP/2010 STARTED AT PM)
     Route: 048
     Dates: start: 20100901
  3. LAMICTAL [Concomitant]
  4. TRILEPTAL [Concomitant]

REACTIONS (11)
  - ATAXIA [None]
  - CLONUS [None]
  - CONVULSION [None]
  - DROOLING [None]
  - DRUG TOXICITY [None]
  - FACE INJURY [None]
  - GAIT DISTURBANCE [None]
  - HEMIPARESIS [None]
  - PSYCHOMOTOR RETARDATION [None]
  - SOMNOLENCE [None]
  - SWELLING FACE [None]
